FAERS Safety Report 23851478 (Version 1)
Quarter: 2024Q2

REPORT INFORMATION
  Report Type: Spontaneous
  Country: US (occurrence: US)
  Receive Date: 20240514
  Receipt Date: 20240514
  Transmission Date: 20240716
  Serious: Yes (Hospitalization, Other)
  Sender: FDA-Public Use
  Company Number: US-SANDOZ-SDZ2024US047517

PATIENT
  Age: 16 Year
  Sex: Female

DRUGS (6)
  1. BUPROPION [Suspect]
     Active Substance: BUPROPION
     Indication: Norepinephrine
     Dosage: 150 MG, QD
     Route: 048
  2. LORAZEPAM [Suspect]
     Active Substance: LORAZEPAM
     Dosage: 1 MG, TID
     Route: 030
  3. LORAZEPAM [Suspect]
     Active Substance: LORAZEPAM
     Indication: Product used for unknown indication
     Dosage: 1 MG
     Route: 030
  4. PALIPERIDONE [Concomitant]
     Active Substance: PALIPERIDONE
     Indication: Product used for unknown indication
     Dosage: 234 MG ,156MG ON SUBSEQUENT INJECTIONS
     Route: 065
  5. SERTRALINE [Concomitant]
     Active Substance: SERTRALINE HYDROCHLORIDE
     Indication: Obsessive-compulsive disorder
     Dosage: 50 MG, BID
     Route: 065
  6. VALPROATE [Concomitant]
     Active Substance: VALPROIC ACID
     Dosage: PO BID FOR AUGMENTATION
     Route: 048

REACTIONS (4)
  - Suicide attempt [Unknown]
  - Seizure [Unknown]
  - Sedation [Unknown]
  - Fatigue [Unknown]
